FAERS Safety Report 7032215-0 (Version None)
Quarter: 2010Q4

REPORT INFORMATION
  Report Type: 
  Country: None (occurrence: None)
  Receive Date: 20101007
  Receipt Date: 20100226
  Transmission Date: 20110411
  Serious: Yes (Hospitalization)
  Sender: FDA-Public Use
  Company Number: US-BRISTOL-MYERS SQUIBB COMPANY-14995450

PATIENT
  Age: 57 Year
  Sex: Male
  Weight: 108 kg

DRUGS (3)
  1. CETUXIMAB [Suspect]
     Indication: RECTAL CANCER
     Dosage: LAST DOSE:19JUN2009 INTERRUPTED ON 26JUN, 2JUL,10JUL
     Route: 042
     Dates: start: 20090417
  2. TARCEVA [Suspect]
     Indication: RECTAL CANCER
     Dosage: HELD IN CYC 2 FOR 6 D:23MAY -28MAY RESTARTED WITH 75MG.LAST ADM ON 02JUL10.
     Route: 048
     Dates: start: 20090417
  3. COUMADIN [Suspect]

REACTIONS (5)
  - ECZEMA ASTEATOTIC [None]
  - HAEMATURIA [None]
  - INTERNATIONAL NORMALISED RATIO INCREASED [None]
  - OEDEMA PERIPHERAL [None]
  - PYREXIA [None]
